FAERS Safety Report 7387619-3 (Version None)
Quarter: 2011Q1

REPORT INFORMATION
  Report Type: 
  Country: None (occurrence: None)
  Receive Date: 20110331
  Receipt Date: 20110325
  Transmission Date: 20110831
  Serious: Yes (Hospitalization, Other)
  Sender: FDA-Public Use
  Company Number: FR-PFIZER INC-2011066563

PATIENT
  Age: 79 Year
  Sex: Female

DRUGS (10)
  1. STILNOX [Interacting]
     Dosage: 10 MG, 1X/DAY
     Route: 048
     Dates: end: 20100409
  2. MOPRAL [Concomitant]
     Dosage: 20
  3. MINISINTROM [Concomitant]
  4. ACETAMINOPHEN [Concomitant]
  5. GINKOR FORT [Concomitant]
     Dosage: UNK
     Route: 048
     Dates: end: 20100409
  6. COLCHIMAX [Concomitant]
  7. COVERSYL [Concomitant]
     Dosage: UNK
  8. XANAX [Suspect]
     Dosage: 0.75 MG, 1X/DAY
     Route: 048
     Dates: end: 20100409
  9. TOPALGIC [Interacting]
     Dosage: 100 MG, 1X/DAY
     Route: 048
     Dates: end: 20100409
  10. LASIX [Concomitant]
     Dosage: 40

REACTIONS (4)
  - DRUG INTERACTION [None]
  - CEREBRAL ATROPHY [None]
  - NIGHTMARE [None]
  - HALLUCINATION [None]
